FAERS Safety Report 6290181-X (Version None)
Quarter: 2009Q3

REPORT INFORMATION
  Report Type: 
  Country: None (occurrence: None)
  Receive Date: 20090730
  Receipt Date: 20090105
  Transmission Date: 20100115
  Serious: No
  Sender: FDA-Public Use
  Company Number: US-BRISTOL-MYERS SQUIBB COMPANY-14460695

PATIENT
  Age: 87 Year
  Sex: Male
  Weight: 95 kg

DRUGS (1)
  1. WARFARIN SODIUM [Suspect]
     Dates: end: 20081107

REACTIONS (2)
  - CONTUSION [None]
  - IMPAIRED HEALING [None]
